FAERS Safety Report 7035745-0 (Version None)
Quarter: 2010Q4

REPORT INFORMATION
  Report Type: 
  Country: None (occurrence: None)
  Receive Date: 20101007
  Receipt Date: 20101007
  Transmission Date: 20110411
  Serious: Yes (Other)
  Sender: FDA-Public Use
  Company Number: None

PATIENT
  Sex: Male
  Weight: 93.2 kg

DRUGS (2)
  1. EMEND [Suspect]
     Indication: CHEMOTHERAPY
     Dosage: 115MG PREMED IV
     Route: 042
     Dates: start: 20101005
  2. EMEND [Suspect]
     Indication: PREMEDICATION
     Dosage: 115MG PREMED IV
     Route: 042
     Dates: start: 20101005

REACTIONS (4)
  - CHEST DISCOMFORT [None]
  - DRUG HYPERSENSITIVITY [None]
  - FLUSHING [None]
  - INFUSION RELATED REACTION [None]
